FAERS Safety Report 11541886 (Version 1)
Quarter: 2015Q3

REPORT INFORMATION
  Report Type: Spontaneous
  Country: US (occurrence: US)
  Receive Date: 20150903
  Receipt Date: 20150903
  Transmission Date: 20151125
  Serious: Yes (Hospitalization, Other)
  Sender: FDA-Public Use
  Company Number: US-ELI_LILLY_AND_COMPANY-US201107003494

PATIENT
  Sex: Male

DRUGS (3)
  1. HUMALOG [Suspect]
     Active Substance: INSULIN LISPRO
     Indication: DIABETES MELLITUS
     Dosage: UNK UNK, UNKNOWN
     Route: 058
  2. HUMALOG [Suspect]
     Active Substance: INSULIN LISPRO
     Dosage: UNK, UNKNOWN
     Route: 058
  3. ANTIHYPERTENSIVES [Concomitant]
     Active Substance: UNSPECIFIED INGREDIENT
     Dosage: UNK

REACTIONS (20)
  - Hypoglycaemic unconsciousness [Unknown]
  - Blood glucose decreased [Unknown]
  - Intervertebral disc protrusion [Unknown]
  - Shock hypoglycaemic [Unknown]
  - Injury [Unknown]
  - Rotator cuff syndrome [Unknown]
  - Carpal tunnel syndrome [Unknown]
  - Hypoaesthesia [Unknown]
  - Angiopathy [Unknown]
  - Arthritis [Unknown]
  - Accident at work [Unknown]
  - Amnesia [Unknown]
  - Paraesthesia [Unknown]
  - Blood glucose increased [Unknown]
  - Surgery [Unknown]
  - Tremor [Unknown]
  - Nerve injury [Unknown]
  - Headache [Unknown]
  - Diabetic neuropathy [Not Recovered/Not Resolved]
  - Arterial disorder [Unknown]

NARRATIVE: CASE EVENT DATE: 1997
